FAERS Safety Report 7903954-1 (Version None)
Quarter: 2011Q4

REPORT INFORMATION
  Report Type: 
  Country: None (occurrence: None)
  Receive Date: 20111109
  Receipt Date: 20111003
  Transmission Date: 20120403
  Serious: No
  Sender: FDA-Public Use
  Company Number: US-BAYER-2011-095434

PATIENT
  Age: 58 Year
  Sex: Female
  Weight: 109 kg

DRUGS (10)
  1. ALEVE [Suspect]
     Dosage: UNK
     Dates: start: 20000101
  2. SYNTHROID [Concomitant]
  3. LISINOPRIL [Concomitant]
  4. MOBIC [Concomitant]
  5. FLAX SEED OIL [Concomitant]
  6. ALEVE (CAPLET) [Suspect]
     Dosage: UNK
     Dates: start: 20110927, end: 20110927
  7. TRIAMTERENE AND HYDROCHLOROTHIAZIDE [Concomitant]
  8. GARLIC [Concomitant]
  9. SIMVASTATIN [Concomitant]
  10. CALCIUM [Concomitant]

REACTIONS (3)
  - DYSPEPSIA [None]
  - NAUSEA [None]
  - VOMITING [None]
